FAERS Safety Report 18068633 (Version 1)
Quarter: 2020Q3

REPORT INFORMATION
  Report Type: Spontaneous
  Country: PL (occurrence: PL)
  Receive Date: 20200724
  Receipt Date: 20200724
  Transmission Date: 20201103
  Serious: Yes (Other)
  Sender: FDA-Public Use
  Company Number: PL-BAUSCH-BL-2020-020810

PATIENT
  Sex: Male

DRUGS (15)
  1. VINCRISTINE [Suspect]
     Active Substance: VINCRISTINE
     Indication: B-CELL LYMPHOMA
     Dosage: 1ST LINE TREATMENT
     Route: 065
     Dates: start: 20191008
  2. OBINUTUZUMAB. [Suspect]
     Active Substance: OBINUTUZUMAB
     Dosage: 2ND LINE TREATMENT, CYCLE 5
     Route: 042
     Dates: start: 20200609
  3. OBINUTUZUMAB. [Suspect]
     Active Substance: OBINUTUZUMAB
     Dosage: 2ND LINE TREATMENT, CYCLE 2
     Route: 042
     Dates: start: 20200228
  4. OBINUTUZUMAB. [Suspect]
     Active Substance: OBINUTUZUMAB
     Dosage: 2ND LINE TREATMENT
     Route: 042
     Dates: start: 20200131
  5. CYCLOPHOSPHAMIDE. [Suspect]
     Active Substance: CYCLOPHOSPHAMIDE
     Indication: B-CELL LYMPHOMA
     Dosage: 1ST LINE TREATMENT
     Route: 065
     Dates: start: 20191008
  6. BENDAMUSTINE [Suspect]
     Active Substance: BENDAMUSTINE
     Dosage: 2ND LINE TREATMENT, CYCLE 2
     Route: 042
     Dates: start: 20200228
  7. BENDAMUSTINE [Suspect]
     Active Substance: BENDAMUSTINE
     Dosage: 2ND LINE TREATMENT, CYCLE 3
     Route: 042
     Dates: start: 20200330
  8. CAELYX [Suspect]
     Active Substance: DOXORUBICIN HYDROCHLORIDE
     Indication: B-CELL LYMPHOMA
     Dosage: 1ST LINE TREATMENT
     Route: 065
     Dates: start: 20191008
  9. PREDNISOLONE. [Suspect]
     Active Substance: PREDNISOLONE
     Indication: B-CELL LYMPHOMA
     Dosage: 1ST LINE TREATMENT
     Route: 065
     Dates: start: 20191008
  10. BENDAMUSTINE [Suspect]
     Active Substance: BENDAMUSTINE
     Indication: B-CELL LYMPHOMA
     Dosage: 2ND LINE TREATMENT
     Route: 042
     Dates: start: 20200131
  11. BENDAMUSTINE [Suspect]
     Active Substance: BENDAMUSTINE
     Dosage: 2ND LINE TREATMENT, CYCLE 4
     Route: 042
     Dates: start: 20200506
  12. BENDAMUSTINE [Suspect]
     Active Substance: BENDAMUSTINE
     Dosage: 2ND LINE TREATMENT, CYCLE 5
     Route: 042
     Dates: start: 20200609
  13. MABTHERA [Suspect]
     Active Substance: RITUXIMAB
     Indication: B-CELL LYMPHOMA
     Route: 065
     Dates: start: 20191008
  14. OBINUTUZUMAB. [Suspect]
     Active Substance: OBINUTUZUMAB
     Indication: B-CELL LYMPHOMA
     Dosage: 2ND LINE TREATMENT, CYCLE 4
     Route: 042
     Dates: start: 20200506
  15. OBINUTUZUMAB. [Suspect]
     Active Substance: OBINUTUZUMAB
     Dosage: 2ND LINE TREATMENT, CYCLE 3
     Route: 042
     Dates: start: 20200330

REACTIONS (6)
  - Feeling cold [Recovered/Resolved]
  - Off label use [Unknown]
  - Neutropenia [Unknown]
  - Granulocytopenia [Unknown]
  - Product use in unapproved indication [Unknown]
  - Drug resistance [Unknown]

NARRATIVE: CASE EVENT DATE: 20191008
